FAERS Safety Report 5332555-7 (Version None)
Quarter: 2007Q2

REPORT INFORMATION
  Report Type: 
  Country: None (occurrence: None)
  Receive Date: 20070523
  Receipt Date: 20070509
  Transmission Date: 20071010
  Serious: Yes (Other)
  Sender: FDA-Public Use
  Company Number: US-SHR-US-2007-013222

PATIENT
  Age: 50 Year
  Sex: Female
  Weight: 64 kg

DRUGS (37)
  1. MAGNEVIST [Suspect]
     Dosage: 20 ML, 1 DOSE
     Route: 042
     Dates: start: 20040501, end: 20040501
  2. MAGNEVIST [Suspect]
     Dosage: 20 ML, 1 DOSE
     Route: 042
     Dates: start: 20050523, end: 20050523
  3. MAGNEVIST [Suspect]
     Dosage: 20 ML, 1 DOSE
     Route: 042
     Dates: start: 20051212, end: 20051212
  4. TYLENOL [Concomitant]
  5. ASPIRIN [Concomitant]
  6. ACYCLOVIR [Concomitant]
  7. EPOGEN [Concomitant]
  8. REGLAN [Concomitant]
  9. METOPROLOL SUCCINATE [Concomitant]
  10. PROTONIX [Concomitant]
  11. ZEMPLAR [Concomitant]
  12. DILANTIN [Concomitant]
  13. PREDNISONE TAB [Concomitant]
  14. NEPHROCAPS [Concomitant]
  15. FERROUS SULFATE [Concomitant]
  16. DIOVAN [Concomitant]
  17. OMEPRAZOLE [Concomitant]
  18. OXYCODONE HCL [Concomitant]
  19. ZOLPIDEM [Concomitant]
  20. PARATHYROID HORMONES [Concomitant]
  21. BLOOD CELLS, PACKED HUMAN [Concomitant]
  22. ARANESP [Concomitant]
  23. IRON [Concomitant]
  24. METHOTREXATE [Concomitant]
  25. MIDODRINE [Concomitant]
  26. POTASSIUM CHLORIDE [Concomitant]
  27. PHOSLO [Concomitant]
  28. CHLOROQUINE [Concomitant]
  29. CYTOXAN [Concomitant]
  30. NEXIUM [Concomitant]
  31. MIRALAX [Concomitant]
  32. LEVAQUIN [Concomitant]
  33. CLINDAMYCIN [Concomitant]
  34. VANCOMYCIN [Concomitant]
  35. CEFEPIME [Concomitant]
  36. LISINOPRIL [Concomitant]
  37. GENTAMYCIN-MP [Concomitant]

REACTIONS (2)
  - NEPHROGENIC FIBROSING DERMOPATHY [None]
  - SERUM FERRITIN INCREASED [None]
